FAERS Safety Report 8317211-5 (Version None)
Quarter: 2012Q2

REPORT INFORMATION
  Report Type: 
  Country: None (occurrence: None)
  Receive Date: 20120427
  Receipt Date: 20120423
  Transmission Date: 20120825
  Serious: Yes (Other)
  Sender: FDA-Public Use
  Company Number: US-BAYER-2012-039628

PATIENT
  Sex: Female

DRUGS (1)
  1. YAZ [Suspect]
     Indication: ACNE
     Dosage: UNK
     Dates: start: 20071201

REACTIONS (5)
  - DEEP VEIN THROMBOSIS [None]
  - FEAR [None]
  - INJURY [None]
  - PAIN [None]
  - ANXIETY [None]
